FAERS Safety Report 13500283 (Version 1)
Quarter: 2017Q2

REPORT INFORMATION
  Report Type: Spontaneous
  Country: US (occurrence: US)
  Receive Date: 20170501
  Receipt Date: 20170501
  Transmission Date: 20170830
  Serious: Yes (Disabling, Other)
  Sender: FDA-Public Use
  Company Number: US-MYLANLABS-2017M1018994

PATIENT

DRUGS (1)
  1. AMLODIPINE BESYLATE TABLETS, USP [Suspect]
     Active Substance: AMLODIPINE BESYLATE
     Indication: HYPERTENSION
     Dosage: 5 MG, QD
     Route: 048
     Dates: start: 20170115

REACTIONS (5)
  - Constipation [Recovering/Resolving]
  - Chest pain [Recovered/Resolved]
  - Tendonitis [Recovering/Resolving]
  - Myalgia [Recovering/Resolving]
  - Muscle spasms [Not Recovered/Not Resolved]

NARRATIVE: CASE EVENT DATE: 20170201
